FAERS Safety Report 19652582 (Version 1)
Quarter: 2021Q3

REPORT INFORMATION
  Report Type: Spontaneous
  Country: NO (occurrence: NO)
  Receive Date: 20210803
  Receipt Date: 20210803
  Transmission Date: 20211014
  Serious: Yes (Other)
  Sender: FDA-Public Use
  Company Number: NVSC2021NO168441

PATIENT
  Age: 21 Year
  Sex: Male

DRUGS (5)
  1. DIVISUN [Concomitant]
     Active Substance: CHOLECALCIFEROL
     Indication: PRODUCT USED FOR UNKNOWN INDICATION
     Dosage: UNK
     Route: 065
  2. QUETIAPIN SANDOZ [Suspect]
     Active Substance: QUETIAPINE
     Indication: TACHYPHRENIA
     Dosage: 100 MG(AS MAXIMUM DOSE)
     Route: 048
     Dates: start: 20210419, end: 20210504
  3. QUETIAPIN SANDOZ [Suspect]
     Active Substance: QUETIAPINE
     Indication: RESTLESSNESS
  4. FOLSYRE NAF [Concomitant]
     Active Substance: FOLIC ACID
     Indication: PRODUCT USED FOR UNKNOWN INDICATION
     Dosage: UNK
     Route: 065
  5. QUETIAPIN SANDOZ [Suspect]
     Active Substance: QUETIAPINE
     Indication: INSOMNIA

REACTIONS (2)
  - Off label use [Recovered/Resolved]
  - Rhabdomyolysis [Recovered/Resolved]

NARRATIVE: CASE EVENT DATE: 202105
